FAERS Safety Report 8505234 (Version 4)
Quarter: 2013Q3

REPORT INFORMATION
  Report Type: Spontaneous
  Country: US (occurrence: None)
  Receive Date: 20120406
  Receipt Date: 20130815
  Transmission Date: 20140515
  Serious: Yes (Hospitalization, Other)
  Sender: FDA-Public Use
  Company Number: ADR-2011-10770

PATIENT
  Sex: Female

DRUGS (1)
  1. LIORESAL [Suspect]
     Indication: MUSCLE SPASTICITY
     Route: 037

REACTIONS (21)
  - Therapeutic response decreased [None]
  - Drug withdrawal syndrome [None]
  - Muscle spasticity [None]
  - Pruritus [None]
  - Device occlusion [None]
  - Headache [None]
  - Hypoxia [None]
  - Hypotension [None]
  - Mental status changes [None]
  - Septic shock [None]
  - Neuropathy peripheral [None]
  - Muscle spasms [None]
  - Device leakage [None]
  - Pneumonia aspiration [None]
  - Urinary tract infection [None]
  - Device dislocation [None]
  - Implant site discharge [None]
  - Paraesthesia [None]
  - Wound dehiscence [None]
  - Neuralgia [None]
  - Myalgia [None]
